FAERS Safety Report 4958683-3 (Version None)
Quarter: 2006Q1

REPORT INFORMATION
  Report Type: 
  Country: None (occurrence: None)
  Receive Date: 20060330
  Receipt Date: 20051215
  Transmission Date: 20060701
  Serious: Yes (Death)
  Sender: FDA-Public Use
  Company Number: US-MERCK-0512USA02538

PATIENT
  Age: 50 Year
  Sex: Female
  Weight: 63 kg

DRUGS (10)
  1. HYDROXYZINE HYDROCHLORIDE [Concomitant]
     Indication: HYPERSENSITIVITY
     Route: 065
  2. PREDNISONE [Concomitant]
     Indication: ARTHRITIS
     Route: 065
  3. PREMPRO [Concomitant]
     Indication: HORMONE LEVEL ABNORMAL
     Route: 065
  4. SULFACETAMIDE SODIUM [Concomitant]
     Indication: EYE INFECTION
     Route: 065
  5. HYDROCHLOROTHIAZIDE [Concomitant]
     Indication: HYPERTENSION
     Route: 065
  6. VIOXX [Suspect]
     Indication: ARTHRALGIA
     Route: 048
     Dates: start: 20030601, end: 20031111
  7. ACYCLOVIR [Concomitant]
     Indication: HERPES VIRUS INFECTION
     Route: 065
     Dates: end: 20031111
  8. ATENOLOL [Concomitant]
     Indication: HYPERTENSION
     Route: 065
     Dates: end: 20031111
  9. CLARINEX [Concomitant]
     Indication: HYPERSENSITIVITY
     Route: 065
  10. IBUPROFEN [Concomitant]
     Indication: PAIN
     Route: 065

REACTIONS (3)
  - HYPERTENSIVE HEART DISEASE [None]
  - MYOCARDIAL INFARCTION [None]
  - SUDDEN CARDIAC DEATH [None]
